FAERS Safety Report 6900551-1 (Version None)
Quarter: 2010Q3

REPORT INFORMATION
  Report Type: 
  Country: None (occurrence: None)
  Receive Date: 20100803
  Receipt Date: 20100726
  Transmission Date: 20110219
  Serious: Yes (Other)
  Sender: FDA-Public Use
  Company Number: CH-PFIZER INC-2010093681

PATIENT
  Sex: Male

DRUGS (1)
  1. ATORVASTATIN CALCIUM [Suspect]
     Dosage: 20 MG, UNK
     Dates: start: 20090101

REACTIONS (2)
  - GAIT DISTURBANCE [None]
  - LIMB DISCOMFORT [None]
